FAERS Safety Report 4952138-8 (Version None)
Quarter: 2006Q1

REPORT INFORMATION
  Report Type: 
  Country: None (occurrence: None)
  Receive Date: 20060320
  Receipt Date: 20060310
  Transmission Date: 20060701
  Serious: Yes (Hospitalization)
  Sender: FDA-Public Use
  Company Number: 2006-03-0634

PATIENT
  Age: 66 Year
  Sex: Female
  Weight: 58 kg

DRUGS (5)
  1. PEG-INTRON [Suspect]
     Indication: HEPATITIS C
     Dosage: 80 MCG QW SUBCUTANEOUS
     Route: 058
     Dates: start: 20060201, end: 20060215
  2. REBETOL [Suspect]
     Indication: HEPATITIS C
     Dosage: 600 MG ORAL
     Route: 048
     Dates: start: 20060201, end: 20060212
  3. DOGMATYL [Suspect]
  4. LANSOPRAZOLE [Concomitant]
  5. ALESION (EPINASTINE HYDROCHLORIDE) [Concomitant]

REACTIONS (2)
  - ASTHENIA [None]
  - PARKINSONISM [None]
